FAERS Safety Report 9911412 (Version 1)
Quarter: 2014Q1

REPORT INFORMATION
  Report Type: Spontaneous
  Country: US (occurrence: US)
  Receive Date: 20140219
  Receipt Date: 20140219
  Transmission Date: 20141002
  Serious: Yes (Hospitalization, Other)
  Sender: FDA-Public Use
  Company Number: US-009507513-1402USA005333

PATIENT
  Sex: Female
  Weight: 72.56 kg

DRUGS (1)
  1. NUVARING [Suspect]
     Indication: CONTRACEPTION
     Dosage: UNK
     Route: 067
     Dates: start: 201002, end: 201205

REACTIONS (10)
  - Loss of consciousness [Unknown]
  - Pulmonary embolism [Unknown]
  - High risk pregnancy [Recovered/Resolved]
  - Maternal exposure before pregnancy [Recovered/Resolved]
  - Nephrolithiasis [Unknown]
  - Myalgia [Unknown]
  - Disturbance in attention [Not Recovered/Not Resolved]
  - Head injury [Unknown]
  - Nausea [Unknown]
  - Headache [Unknown]
